FAERS Safety Report 9032147 (Version 1)
Quarter: 2013Q1

REPORT INFORMATION
  Report Type: Spontaneous
  Country: FR (occurrence: FR)
  Receive Date: 20130122
  Receipt Date: 20130122
  Transmission Date: 20140127
  Serious: Yes (Other)
  Sender: FDA-Public Use
  Company Number: FR-OTSUKA-US-2013-10074

PATIENT
  Age: 44 Year
  Sex: Female

DRUGS (39)
  1. BUSULFEX [Suspect]
     Indication: BONE MARROW CONDITIONING REGIMEN
     Dosage: 60 MG MILLIGRAM(S), QD
     Route: 042
     Dates: start: 20121016, end: 20121020
  2. VISTIDE [Suspect]
     Indication: CYSTITIS HAEMORRHAGIC
     Dosage: 375 MG MILLIGRAM(S), SINGLE
     Dates: start: 20121103, end: 20121103
  3. VISTIDE [Suspect]
     Dosage: 75 MG MILLIGRAM(S), UNK
     Route: 042
     Dates: start: 20121109, end: 20121109
  4. VISTIDE [Suspect]
     Dosage: 75 MG/ML, QD
     Route: 043
     Dates: start: 20121114, end: 20121114
  5. VISTIDE [Suspect]
     Dosage: 75 MG/ML, UNK
     Dates: start: 20121122, end: 20121122
  6. BENEMIDE [Suspect]
     Indication: PREMEDICATION
     Dosage: 2 G GRAM(S), UNK
     Route: 048
     Dates: start: 20121102, end: 20121103
  7. BENEMIDE [Suspect]
     Dosage: 3 G GRAM(S), QD
     Route: 048
     Dates: start: 20121109, end: 20121109
  8. ALKERAN [Suspect]
     Indication: BONE MARROW CONDITIONING REGIMEN
     Dosage: 130 MG MILLIGRAM(S), UNK
     Route: 040
     Dates: start: 20090113, end: 20090113
  9. ALKERAN [Suspect]
     Dosage: 350 MG MILLIGRAM(S), UNK
     Dates: start: 20090416, end: 20090416
  10. ALKERAN [Suspect]
     Dosage: 50/10 MG/ML
     Dates: start: 20120309, end: 20120309
  11. ALKERAN [Suspect]
     Dosage: 275 MG MILLIGRAM(S), QD
     Route: 040
     Dates: start: 20121020, end: 20121020
  12. GENTAMICIN [Concomitant]
     Dosage: UNK
     Dates: start: 20121015, end: 20121029
  13. VALACICLOVIR [Concomitant]
     Dosage: UNK
     Dates: start: 20121015
  14. VALPROIC ACID [Concomitant]
     Dosage: UNK
     Dates: start: 20121015, end: 20121022
  15. OMEPRAZOLE [Concomitant]
     Dosage: UNK
     Dates: start: 20121015
  16. FLUCONAZOLE [Concomitant]
     Dosage: UNK
     Dates: start: 20121017
  17. SULFAMETHOXAZOLE [Concomitant]
     Dosage: UNK
     Dates: start: 20121017
  18. ACETYLSALICYLATE LYSINE [Concomitant]
     Dosage: UNK
     Dates: start: 20121016, end: 20121023
  19. ONDANSETRON [Concomitant]
     Dosage: UNK
     Dates: start: 20121016, end: 20121020
  20. CEFTRIAXONE SODIUM [Concomitant]
     Dosage: UNK
     Dates: start: 20121117, end: 20121122
  21. ALIZAPRIDE HYDROCHLORIDE [Concomitant]
     Dosage: UNK
     Dates: start: 20121019
  22. VANCOMYCIN HYDROCHLORIDE [Concomitant]
     Dosage: UNK
     Dates: start: 20121019, end: 20121027
  23. PARACETAMOL [Concomitant]
     Dosage: UNK
     Dates: start: 20121021
  24. CILASTATIN SODIUM [Concomitant]
     Dosage: UNK
     Dates: start: 20121022
  25. MORPHINE [Concomitant]
     Dosage: UNK
     Dates: start: 20121024
  26. RAMIPRIL [Concomitant]
     Dosage: UNK
     Dates: start: 20121023
  27. GANCICLOVIR SODIUM [Concomitant]
     Dosage: UNK
     Dates: start: 20121102, end: 20121102
  28. AMPHOTERICIN B [Concomitant]
     Dosage: UNK
     Dates: start: 20121102, end: 20121102
  29. DOXYCYCLINE HYDROCHLORIDE [Concomitant]
     Dosage: UNK
     Dates: start: 20121020, end: 20121105
  30. CIPROFLOXACIN LACTATE [Concomitant]
     Dosage: UNK
     Dates: start: 20121029, end: 20121110
  31. PIPERACILLIN [Concomitant]
     Dosage: UNK
     Dates: start: 20121021, end: 20121102
  32. LINEZOLID [Concomitant]
     Dosage: UNK
     Dates: start: 20121021, end: 20121026
  33. ACICLOVIR [Concomitant]
     Dosage: UNK
     Dates: start: 20121021, end: 20121028
  34. IMMUNOGLOBULIN HUMAN NORMAL [Concomitant]
     Dosage: UNK
     Dates: start: 20121115, end: 20121115
  35. PARACETAMOL [Concomitant]
     Dosage: UNK
     Dates: start: 20121106
  36. ZOLPIDEM [Concomitant]
     Dosage: UNK
     Dates: start: 20121105
  37. DICLOFENAC DIETHYLAMINE [Concomitant]
     Dosage: UNK
     Dates: start: 20121102, end: 20121105
  38. ALPRAZOLAM [Concomitant]
     Dosage: UNK
     Dates: start: 20121027, end: 20121104
  39. NEFOPAM HYDROCHLORIDE [Concomitant]
     Dosage: UNK
     Dates: start: 20121027, end: 20121104

REACTIONS (2)
  - Palmar-plantar erythrodysaesthesia syndrome [Unknown]
  - Cystitis haemorrhagic [Unknown]
